FAERS Safety Report 4282453-5 (Version None)
Quarter: 2004Q1

REPORT INFORMATION
  Report Type: 
  Country: None (occurrence: None)
  Receive Date: 20040120
  Receipt Date: 20030521
  Transmission Date: 20041129
  Serious: Yes (Hospitalization)
  Sender: FDA-Public Use
  Company Number: 03P-163-0219603-00

PATIENT
  Sex: Male

DRUGS (1)
  1. OMNICEF [Suspect]
     Indication: EAR INFECTION
     Dosage: PER ORAL
     Route: 048
     Dates: start: 20030101, end: 20030101

REACTIONS (1)
  - ERYTHEMA MULTIFORME [None]
